FAERS Safety Report 9937068 (Version 2)
Quarter: 2014Q2

REPORT INFORMATION
  Report Type: Spontaneous
  Country: US (occurrence: None)
  Receive Date: 20140122
  Receipt Date: 20140425
  Transmission Date: 20141212
  Serious: No
  Sender: FDA-Public Use
  Company Number: AP356-00311-SPO-US

PATIENT
  Age: 52 Year
  Sex: Female
  Weight: 91 kg

DRUGS (5)
  1. BELVIQ (LORCASERIN HYDROCHLORIDE) [Suspect]
     Indication: WEIGHT DECREASED
     Route: 048
     Dates: start: 201307, end: 201312
  2. SYNTHROID (LEVOTHYROXINE SODIUM) [Concomitant]
  3. VITAMIN E (TOCOPHEROL) [Concomitant]
  4. CALCIUM (CALCIUM) [Concomitant]
  5. MVI (MVI) [Concomitant]

REACTIONS (4)
  - Hunger [None]
  - Weight increased [None]
  - Vertigo [None]
  - Drug effect decreased [None]
